FAERS Safety Report 5162599-X (Version None)
Quarter: 2006Q4

REPORT INFORMATION
  Report Type: 
  Country: None (occurrence: None)
  Receive Date: 20061201
  Receipt Date: 20061121
  Transmission Date: 20070319
  Serious: Yes (Other)
  Sender: FDA-Public Use
  Company Number: CH-ALLERGAN-0607752US

PATIENT
  Age: 13 Year
  Sex: Male

DRUGS (2)
  1. BOTULINUM TOXIN TYPE A UNK [Suspect]
     Indication: HYPERTONIC BLADDER
     Dosage: UNK, SINGLE
     Route: 030
  2. BOTULINUM TOXIN TYPE A UNK [Suspect]
     Dosage: UNK, SINGLE
     Route: 030

REACTIONS (5)
  - DEVICE BREAKAGE [None]
  - HYDRONEPHROSIS [None]
  - HYPERTONIC BLADDER [None]
  - INCONTINENCE [None]
  - THERAPY NON-RESPONDER [None]
